FAERS Safety Report 11558724 (Version 1)
Quarter: 2015Q3

REPORT INFORMATION
  Report Type: Spontaneous
  Country: BR (occurrence: BR)
  Receive Date: 20150928
  Receipt Date: 20150928
  Transmission Date: 20151125
  Serious: Yes (Other)
  Sender: FDA-Public Use
  Company Number: BR-BRISTOL-MYERS SQUIBB COMPANY-BMS-2015-064371

PATIENT
  Age: 72 Year
  Sex: Male

DRUGS (2)
  1. ELIQUIS [Suspect]
     Active Substance: APIXABAN
     Indication: CEREBROVASCULAR ACCIDENT PROPHYLAXIS
     Dosage: 2.5 MG, BID
     Route: 048
     Dates: start: 2013
  2. ALGINAC [Concomitant]
     Active Substance: CYANOCOBALAMIN\DICLOFENAC SODIUM\PYRIDOXINE HYDROCHLORIDE\THIAMINE MONONITRATE
     Indication: CEREBROVASCULAR ACCIDENT
     Dosage: UNK
     Route: 048
     Dates: start: 2012

REACTIONS (3)
  - Fall [Unknown]
  - Femur fracture [Unknown]
  - Hip fracture [Unknown]

NARRATIVE: CASE EVENT DATE: 20150226
